FAERS Safety Report 4554032-3 (Version None)
Quarter: 2005Q1

REPORT INFORMATION
  Report Type: 
  Country: None (occurrence: None)
  Receive Date: 20050118
  Receipt Date: 20041115
  Transmission Date: 20050727
  Serious: Yes (Hospitalization, Disabling)
  Sender: FDA-Public Use
  Company Number: US-MERCK-0411USA02666

PATIENT
  Age: 50 Year
  Sex: Female

DRUGS (1)
  1. VIOXX [Suspect]
     Indication: KNEE OPERATION
     Route: 048
     Dates: start: 20000101, end: 20011023

REACTIONS (2)
  - ARTERIAL DISORDER [None]
  - MYOCARDIAL INFARCTION [None]
